FAERS Safety Report 5912336-3 (Version None)
Quarter: 2008Q4

REPORT INFORMATION
  Report Type: 
  Country: None (occurrence: None)
  Receive Date: 20081008
  Receipt Date: 20081003
  Transmission Date: 20090506
  Serious: No
  Sender: FDA-Public Use
  Company Number: BF-MERCK-0604USA03267B1

PATIENT
  Sex: Female

DRUGS (2)
  1. STROMECTOL [Suspect]
     Indication: FILARIASIS LYMPHATIC
     Route: 064
     Dates: start: 20060108, end: 20060108
  2. ALBENDAZOLE [Suspect]
     Indication: FILARIASIS LYMPHATIC
     Route: 064
     Dates: start: 20060108, end: 20060108

REACTIONS (3)
  - ABDOMINAL PAIN LOWER [None]
  - ANAEMIA [None]
  - UMBILICAL HERNIA [None]
